FAERS Safety Report 5599808-9 (Version None)
Quarter: 2008Q1

REPORT INFORMATION
  Report Type: 
  Country: None (occurrence: None)
  Receive Date: 20080118
  Receipt Date: 20071210
  Transmission Date: 20080703
  Serious: Yes (Hospitalization)
  Sender: FDA-Public Use
  Company Number: 001#1#2007-00791

PATIENT
  Age: 69 Year
  Sex: Male

DRUGS (3)
  1. NEUPRO [Suspect]
     Indication: PARKINSON'S DISEASE
     Dosage: 8 MG/24H (8 MG/24H 1 IN 1 DAY (S)) TRANSDERMAL
     Route: 062
  2. BUPRENORPHINE HCL [Concomitant]
  3. BISOPROLOL FUMARATE [Concomitant]

REACTIONS (2)
  - BACK PAIN [None]
  - DIZZINESS [None]
